FAERS Safety Report 6691802-X (Version None)
Quarter: 2010Q2

REPORT INFORMATION
  Report Type: 
  Country: None (occurrence: None)
  Receive Date: 20100422
  Receipt Date: 20090317
  Transmission Date: 20101027
  Serious: No
  Sender: FDA-Public Use
  Company Number: US-ASTRAZENECA-2009UW02983

PATIENT
  Age: 73 Year
  Sex: Male
  Weight: 117.9 kg

DRUGS (1)
  1. METOPROLOL SUCCINATE [Suspect]
     Dosage: UNKNOWN
     Route: 048
     Dates: start: 20060101

REACTIONS (3)
  - OEDEMA PERIPHERAL [None]
  - PARAESTHESIA [None]
  - WEIGHT INCREASED [None]
